FAERS Safety Report 9234041 (Version 1)
Quarter: 2013Q1

REPORT INFORMATION
  Report Type: Spontaneous
  Country: US (occurrence: None)
  Receive Date: 20121031
  Receipt Date: 20121031
  Transmission Date: 20140127
  Serious: No
  Sender: FDA-Public Use
  Company Number: PHEH2012US015330

PATIENT
  Age: 61 Year
  Sex: Female
  Weight: 94.8 kg

DRUGS (8)
  1. GILENYA (FTY) CAPSULE, 0.5MG [Suspect]
     Indication: MULTIPLE SCLEROSIS
     Route: 048
     Dates: start: 20120801
  2. LIPITOR (ATORVASTATIN) [Concomitant]
  3. CALCIUM (CALCIUM) [Concomitant]
  4. VITAMINS (ASCORBIC ACID, ERGOCALCIFEROL, NICOTINAMIDE, RETINOL, RIBOFLAVIN, THIAMINE HYDROCHLORIDE) [Concomitant]
  5. ASPIRIN (ACETYLSALICYLIC ACID) [Concomitant]
  6. CRANBERRY PILLS [Concomitant]
  7. SIMVASTATIN (SIMVASTATIN) [Concomitant]
  8. SENOKOT (SENNA ALEXANDRINA FRUIT) [Concomitant]

REACTIONS (4)
  - Pain in extremity [None]
  - Muscle spasms [None]
  - Muscle spasticity [None]
  - Asthenia [None]
